FAERS Safety Report 8392985-6 (Version None)
Quarter: 2012Q2

REPORT INFORMATION
  Report Type: 
  Country: None (occurrence: None)
  Receive Date: 20120529
  Receipt Date: 20120523
  Transmission Date: 20120825
  Serious: Yes (Death, Hospitalization)
  Sender: FDA-Public Use
  Company Number: DE-PFIZER INC-2012040327

PATIENT
  Age: 60 Year
  Sex: Male
  Weight: 69 kg

DRUGS (14)
  1. TEMSIROLIMUS [Suspect]
     Indication: RENAL CANCER
     Dosage: 25 MG, UNK
     Route: 042
     Dates: start: 20111020, end: 20120127
  2. MCP ^ALIUD PHARMA^ [Concomitant]
  3. ATACAND [Concomitant]
  4. AMLODIPINE [Concomitant]
  5. DEXAMETHASONE [Concomitant]
     Indication: PREMEDICATION
     Dosage: 4 MG, UNK
  6. PANTOPRAZOLE [Concomitant]
  7. TORSEMIDE [Concomitant]
  8. DIPYRONE TAB [Concomitant]
  9. SEROQUEL [Concomitant]
  10. LYRICA [Concomitant]
  11. METOPROLOL TARTRATE AND HYDROCHLOROTHIAZIDE [Concomitant]
  12. CLONIDINE [Concomitant]
  13. ZOMETA [Concomitant]
     Indication: RENAL CANCER
     Dosage: 4 MG, UNK
  14. CLEMASTINE FUMARATE [Concomitant]
     Indication: PREMEDICATION
     Dosage: 2 MG, UNK

REACTIONS (6)
  - DECREASED APPETITE [None]
  - WEIGHT DECREASED [None]
  - NAUSEA [None]
  - SEPSIS [None]
  - DYSPNOEA [None]
  - ASCITES [None]
